FAERS Safety Report 7176565-6 (Version None)
Quarter: 2010Q4

REPORT INFORMATION
  Report Type: 
  Country: None (occurrence: None)
  Receive Date: 20101215
  Receipt Date: 20101215
  Transmission Date: 20110411
  Serious: Yes (Other)
  Sender: FDA-Public Use
  Company Number: None

PATIENT
  Age: 50 Year
  Sex: Female
  Weight: 65.7716 kg

DRUGS (2)
  1. BOTOX [Suspect]
     Indication: MIGRAINE
     Dosage: 10 TO 30 UNITS ABOUT 5 INJECTION OTHER 8 UNITS RECENT INJECTION
     Route: 050
     Dates: start: 20070501, end: 20101020
  2. BOTOX [Suspect]
     Indication: SKIN COSMETIC PROCEDURE
     Dosage: 10 TO 30 UNITS ABOUT 5 INJECTION OTHER 8 UNITS RECENT INJECTION
     Route: 050
     Dates: start: 20070501, end: 20101020

REACTIONS (9)
  - DRUG HYPERSENSITIVITY [None]
  - EYE MOVEMENT DISORDER [None]
  - EYE PAIN [None]
  - EYELID PTOSIS [None]
  - FACIAL PAIN [None]
  - NEUROTOXICITY [None]
  - RASH ERYTHEMATOUS [None]
  - RHINALGIA [None]
  - VISION BLURRED [None]
